FAERS Safety Report 6451828-8 (Version None)
Quarter: 2009Q4

REPORT INFORMATION
  Report Type: 
  Country: None (occurrence: None)
  Receive Date: 20091117
  Receipt Date: 20091103
  Transmission Date: 20100525
  Serious: Yes (Hospitalization)
  Sender: FDA-Public Use
  Company Number: 1000010067

PATIENT
  Age: 65 Year
  Sex: Female

DRUGS (11)
  1. ESCITALOPRAM [Suspect]
     Indication: DEPRESSION
     Dosage: 10 MG, (10 MG, 1 IN 1 D), ORAL
     Route: 048
     Dates: start: 20080101, end: 20090924
  2. BACTRIM DS [Suspect]
     Indication: STAPHYLOCOCCAL INFECTION
     Dosage: 3 DOSAGE FORMS (1 DOSAGE FORMS, 3 IN 1 D), ORAL
     Route: 048
     Dates: start: 20090826, end: 20090924
  3. LESCOL [Suspect]
     Indication: MYOCARDIAL ISCHAEMIA
     Dosage: 80 MG (80 MG, 1 IN 1 D), ORAL
     Route: 048
     Dates: start: 20070101, end: 20090924
  4. XANAX [Suspect]
     Indication: DEPRESSION
     Dosage: 0.25 MG (0.25 MG, 1 IN 1 D), ORAL
     Route: 048
     Dates: start: 20080101, end: 20090924
  5. TRIFLUCAN (CAPSULES) [Suspect]
     Indication: ORAL CANDIDIASIS
     Dosage: 100 MG (100 MG, 1 IN 1 D), ORAL
     Route: 048
     Dates: start: 20090921, end: 20090924
  6. FUCIDINE (TABLETS) [Concomitant]
  7. AMLOR [Concomitant]
  8. PREVISCAN [Concomitant]
  9. TENORMIN [Concomitant]
  10. NEXIUM [Concomitant]
  11. IMOVANE [Concomitant]

REACTIONS (6)
  - CELL DEATH [None]
  - DEVICE RELATED INFECTION [None]
  - FALL [None]
  - RHABDOMYOLYSIS [None]
  - STAPHYLOCOCCAL INFECTION [None]
  - SURGICAL PROCEDURE REPEATED [None]
